FAERS Safety Report 8220479-7 (Version None)
Quarter: 2012Q1

REPORT INFORMATION
  Report Type: 
  Country: None (occurrence: None)
  Receive Date: 20120320
  Receipt Date: 20120309
  Transmission Date: 20120608
  Serious: Yes (Other)
  Sender: FDA-Public Use
  Company Number: CA-JNJFOC-20120305023

PATIENT
  Sex: Female
  Weight: 66 kg

DRUGS (6)
  1. PAXIL [Concomitant]
     Route: 065
  2. REMICADE [Suspect]
     Route: 042
     Dates: start: 20040929, end: 20111121
  3. BENADRYL [Concomitant]
     Indication: PREMEDICATION
     Route: 042
  4. TYLENOL [Concomitant]
     Indication: PREMEDICATION
     Route: 048
  5. REMICADE [Suspect]
     Indication: CROHN'S DISEASE
     Route: 042
     Dates: start: 20120309, end: 20120309
  6. TYLENOL W/ CODEINE NO. 3 [Concomitant]
     Route: 065

REACTIONS (6)
  - DIZZINESS [None]
  - FISTULA REPAIR [None]
  - PALPITATIONS [None]
  - INFUSION RELATED REACTION [None]
  - FEELING ABNORMAL [None]
  - FEELING OF BODY TEMPERATURE CHANGE [None]
